FAERS Safety Report 25467612 (Version 1)
Quarter: 2025Q2

REPORT INFORMATION
  Report Type: Spontaneous
  Country: US (occurrence: None)
  Receive Date: 20250622
  Receipt Date: 20250622
  Transmission Date: 20250716
  Serious: Yes (Hospitalization, Disabling, Other)
  Sender: FDA-CTU
  Company Number: None

PATIENT
  Age: 24 Year
  Sex: Female
  Weight: 60.75 kg

DRUGS (1)
  1. NITROFURANTOIN MONOHYDRATE MACROCRYSTALS [Suspect]
     Active Substance: NITROFURANTOIN\NITROFURANTOIN MONOHYDRATE
     Dosage: 10 CAPSULE(S) TWICE A DAY ORAL
     Route: 048
     Dates: start: 20240313, end: 20240317

REACTIONS (8)
  - Insomnia [None]
  - Hallucination [None]
  - Paranoia [None]
  - Psychotic disorder [None]
  - Cognitive disorder [None]
  - Neurotoxicity [None]
  - Impaired work ability [None]
  - Impaired quality of life [None]

NARRATIVE: CASE EVENT DATE: 20240313
